FAERS Safety Report 5227510-1 (Version None)
Quarter: 2007Q1

REPORT INFORMATION
  Report Type: 
  Country: None (occurrence: None)
  Receive Date: 20070202
  Receipt Date: 20070122
  Transmission Date: 20070707
  Serious: Yes (Hospitalization)
  Sender: FDA-Public Use
  Company Number: US-SHR-US-2007-002164

PATIENT
  Age: 71 Year
  Sex: Male

DRUGS (3)
  1. BETASERON [Suspect]
     Indication: RELAPSING-REMITTING MULTIPLE SCLEROSIS
     Dates: start: 20030826, end: 20050228
  2. BETASERON [Suspect]
     Dates: start: 20060919, end: 20061006
  3. BETASERON [Suspect]
     Dosage: 8 MIU, EVERY 2D
     Route: 058
     Dates: start: 20061021

REACTIONS (2)
  - PNEUMONIA [None]
  - THROMBOSIS [None]
